FAERS Safety Report 13630402 (Version 1)
Quarter: 2017Q2

REPORT INFORMATION
  Report Type: Spontaneous
  Country: US (occurrence: US)
  Receive Date: 20170531
  Receipt Date: 20170531
  Transmission Date: 20170830
  Serious: No
  Sender: FDA-Public Use
  Company Number: US-ASTELLAS-1300001

PATIENT
  Sex: Male

DRUGS (13)
  1. FLOMAX [Concomitant]
     Active Substance: TAMSULOSIN HYDROCHLORIDE
  2. TAMSULOSIN [Concomitant]
     Active Substance: TAMSULOSIN
  3. TARCEVA [Suspect]
     Active Substance: ERLOTINIB HYDROCHLORIDE
     Indication: LUNG NEOPLASM MALIGNANT
  4. ATENOLOL. [Concomitant]
     Active Substance: ATENOLOL
  5. XANAX [Concomitant]
     Active Substance: ALPRAZOLAM
  6. DIOVAN [Concomitant]
     Active Substance: VALSARTAN
  7. VALSARTAN. [Concomitant]
     Active Substance: VALSARTAN
  8. TAMSULOSIN [Concomitant]
     Active Substance: TAMSULOSIN
     Route: 065
  9. SIMVASTATIN. [Concomitant]
     Active Substance: SIMVASTATIN
     Route: 065
  10. TARCEVA [Suspect]
     Active Substance: ERLOTINIB HYDROCHLORIDE
     Indication: LUNG NEOPLASM MALIGNANT
     Route: 048
     Dates: start: 20130821
  11. EFFIENT [Concomitant]
     Active Substance: PRASUGREL HYDROCHLORIDE
  12. ZOCOR [Concomitant]
     Active Substance: SIMVASTATIN
  13. ALPRAZOLAM. [Concomitant]
     Active Substance: ALPRAZOLAM

REACTIONS (2)
  - Rash generalised [Unknown]
  - Acne [Not Recovered/Not Resolved]
